FAERS Safety Report 18449639 (Version 2)
Quarter: 2021Q1

REPORT INFORMATION
  Report Type: Report from Study
  Country: US (occurrence: US)
  Receive Date: 20201030
  Receipt Date: 20210106
  Transmission Date: 20210419
  Serious: Yes (Other)
  Sender: FDA-Public Use
  Company Number: US-JNJFOC-20201032807

PATIENT
  Sex: Female

DRUGS (15)
  1. BASAGLAR [Concomitant]
     Active Substance: INSULIN GLARGINE
  2. CITALOPRAM [Concomitant]
     Active Substance: CITALOPRAM HYDROBROMIDE
  3. HYDROCHLOROTH [Concomitant]
     Active Substance: HYDROCHLOROTHIAZIDE
  4. XTAMPZA ER [Concomitant]
     Active Substance: OXYCODONE
  5. CLONAZEPAM. [Concomitant]
     Active Substance: CLONAZEPAM
  6. FOLIC ACID. [Concomitant]
     Active Substance: FOLIC ACID
  7. STELARA [Suspect]
     Active Substance: USTEKINUMAB
     Indication: PSORIASIS
     Route: 058
     Dates: start: 202007
  8. DICLOFENAC                         /00372302/ [Concomitant]
     Active Substance: DICLOFENAC
  9. GABAPENTIN. [Concomitant]
     Active Substance: GABAPENTIN
  10. HYDROCORTISONE. [Concomitant]
     Active Substance: HYDROCORTISONE
  11. LANTUS [Concomitant]
     Active Substance: INSULIN GLARGINE
  12. ATORVASTATIN [Concomitant]
     Active Substance: ATORVASTATIN
  13. STELARA [Suspect]
     Active Substance: USTEKINUMAB
  14. AMLODIPINE [Concomitant]
     Active Substance: AMLODIPINE BESYLATE
  15. FAMOTIDINE. [Concomitant]
     Active Substance: FAMOTIDINE

REACTIONS (2)
  - Systemic lupus erythematosus [Not Recovered/Not Resolved]
  - Drug ineffective [Unknown]
